FAERS Safety Report 4925071-5 (Version None)
Quarter: 2006Q1

REPORT INFORMATION
  Report Type: 
  Country: None (occurrence: None)
  Receive Date: 20060222
  Receipt Date: 20060209
  Transmission Date: 20060701
  Serious: Yes (Disabling, Other)
  Sender: FDA-Public Use
  Company Number: 2006020588

PATIENT
  Sex: Male
  Weight: 88.4514 kg

DRUGS (12)
  1. LIPITOR [Suspect]
     Indication: BLOOD CHOLESTEROL INCREASED
     Dosage: 40 MG (40 MG 1IN 1 D) ORAL
     Route: 048
  2. NEURONTIN [Suspect]
     Indication: NEUROPATHY PERIPHERAL
     Dosage: 2400 MG (3 IN 1 D), ORAL
     Route: 048
  3. NELFINAVIR MESILATE (NELFINAVIR MESILATE) [Suspect]
     Indication: ACQUIRED IMMUNODEFICIENCY SYNDROME
     Dosage: 2500 MG (2 IN 1 D), ORAL
     Route: 048
  4. GABAPENTIN [Suspect]
     Indication: NEUROPATHY PERIPHERAL
     Dosage: 2400 MG (3 IN 1 D), ORAL
     Route: 048
  5. TRICOR [Concomitant]
  6. ALLOPURINOL [Concomitant]
  7. LISINOPRIL [Concomitant]
  8. AMBIEN [Concomitant]
  9. SUSTIVA [Concomitant]
  10. EPIVIR [Concomitant]
  11. MOBIC [Concomitant]
  12. FOLIC ACID [Concomitant]

REACTIONS (5)
  - ACQUIRED IMMUNODEFICIENCY SYNDROME [None]
  - BLOOD CHOLESTEROL INCREASED [None]
  - DIFFICULTY IN WALKING [None]
  - NEUROPATHY PERIPHERAL [None]
  - REFLEXES ABNORMAL [None]
